FAERS Safety Report 4392264-8 (Version None)
Quarter: 2004Q3

REPORT INFORMATION
  Report Type: 
  Country: None (occurrence: None)
  Receive Date: 20040702
  Receipt Date: 20040223
  Transmission Date: 20050211
  Serious: Yes (Other)
  Sender: FDA-Public Use
  Company Number: 2004UW03167

PATIENT
  Age: 74 Year
  Sex: Female
  Weight: 68.0396 kg

DRUGS (9)
  1. CRESTOR [Suspect]
     Indication: HIGH DENSITY LIPOPROTEIN DECREASED
     Dosage: 5 MG PO
     Route: 048
     Dates: start: 20040101
  2. DARVOCET-N 100 [Concomitant]
  3. AVAPRO [Concomitant]
  4. PEPCID [Concomitant]
  5. ESTER-C [Concomitant]
  6. CALCIUM AND MINERALS [Concomitant]
  7. B12 [Concomitant]
  8. B6 [Concomitant]
  9. FOLIC ACID [Concomitant]

REACTIONS (2)
  - FAECES DISCOLOURED [None]
  - LOOSE STOOLS [None]
